FAERS Safety Report 12099459 (Version 1)
Quarter: 2016Q1

REPORT INFORMATION
  Report Type: Spontaneous
  Country: IT (occurrence: IT)
  Receive Date: 20160222
  Receipt Date: 20160222
  Transmission Date: 20160526
  Serious: Yes (Other)
  Sender: FDA-Public Use
  Company Number: IT-SUN PHARMACEUTICAL INDUSTRIES LTD-2016R1-111815

PATIENT
  Age: 68 Year
  Sex: Male

DRUGS (2)
  1. DEXAMETHASONE. [Suspect]
     Active Substance: DEXAMETHASONE
     Indication: DISEASE RECURRENCE
     Dosage: 40 MG, 1/WEEK
     Route: 065
  2. LENALIDOMIDE [Suspect]
     Active Substance: LENALIDOMIDE
     Indication: DISEASE RECURRENCE
     Dosage: 25 MG FOR 21 DAYS EVERY 28 DAYS
     Route: 065

REACTIONS (6)
  - Paraproteinaemia [Unknown]
  - Plasma cell myeloma recurrent [Unknown]
  - Visceral leishmaniasis [Recovered/Resolved]
  - Hepatomegaly [Unknown]
  - Pancytopenia [Unknown]
  - Asthenia [Unknown]
